FAERS Safety Report 4458250-4 (Version None)
Quarter: 2004Q3

REPORT INFORMATION
  Report Type: 
  Country: None (occurrence: None)
  Receive Date: 20040924
  Receipt Date: 20040914
  Transmission Date: 20050211
  Serious: Yes (Disabling)
  Sender: FDA-Public Use
  Company Number: JP-JNJFOC-20040702621

PATIENT
  Age: 75 Year
  Sex: Female

DRUGS (8)
  1. LEVOFLOXACIN [Suspect]
     Indication: BRONCHITIS
     Route: 049
     Dates: start: 20040612, end: 20040617
  2. OZOTHINE [Concomitant]
     Route: 045
  3. CALMIXENE [Concomitant]
     Route: 049
  4. VENTOLIN [Concomitant]
     Dosage: 3 U
     Route: 055
  5. HEXAPNEUMINE [Concomitant]
  6. HEXAPNEUMINE [Concomitant]
  7. HEXAPNEUMINE [Concomitant]
     Dosage: 2 TBSP
  8. BETAMETHASONE [Concomitant]
     Route: 049

REACTIONS (1)
  - ANOSMIA [None]
